FAERS Safety Report 14924258 (Version 1)
Quarter: 2018Q2

REPORT INFORMATION
  Report Type: Spontaneous
  Country: DE (occurrence: DE)
  Receive Date: 20180522
  Receipt Date: 20180522
  Transmission Date: 20180711
  Serious: Yes (Other)
  Sender: FDA-Public Use
  Company Number: DE-MYLANLABS-2018M1032391

PATIENT
  Sex: Female

DRUGS (5)
  1. LIORESAL [Suspect]
     Active Substance: BACLOFEN
     Indication: PAIN
  2. LIORESAL [Suspect]
     Active Substance: BACLOFEN
     Indication: MUSCLE SPASTICITY
     Dosage: UNK
     Route: 065
  3. BACLOFEN. [Suspect]
     Active Substance: BACLOFEN
     Indication: PAIN
     Dosage: 2 DF, (20 MG) VIA TUBE UNK
     Route: 065
  4. BACLOFEN. [Suspect]
     Active Substance: BACLOFEN
     Dosage: 5 MG, Q3H
     Route: 065
  5. BACLOFEN. [Suspect]
     Active Substance: BACLOFEN
     Indication: MUSCLE SPASTICITY
     Dosage: 2 DF, (10 MG) VIA TUBE UNK
     Route: 065

REACTIONS (5)
  - Drug ineffective [Unknown]
  - Aspiration [Unknown]
  - Pain [Unknown]
  - Pathogen resistance [Unknown]
  - Coma [Unknown]
